FAERS Safety Report 5211683-0 (Version None)
Quarter: 2007Q1

REPORT INFORMATION
  Report Type: 
  Country: None (occurrence: None)
  Receive Date: 20070117
  Receipt Date: 20070117
  Transmission Date: 20070707
  Serious: Yes (Life-Threatening)
  Sender: FDA-Public Use
  Company Number: None

PATIENT
  Age: 45 Year
  Sex: Female
  Weight: 65 kg

DRUGS (2)
  1. GADOLINIUM [Suspect]
     Indication: ARTERIOVENOUS FISTULA THROMBOSIS
     Dosage: 100 CC PER EXPOSURE  5 OR MORE TIMES   IV
     Route: 042
     Dates: start: 20041229, end: 20060127
  2. GADOLINIUM [Suspect]
     Indication: ARTERIOVENOUS FISTULA THROMBOSIS
     Dosage: 100 CC PER EXPOSURE  5 OR MORE TIMES   IV
     Route: 042
     Dates: start: 20060130, end: 20061226

REACTIONS (1)
  - NEPHROSCLEROSIS [None]
